FAERS Safety Report 8234677-X (Version None)
Quarter: 2012Q1

REPORT INFORMATION
  Report Type: 
  Country: None (occurrence: None)
  Receive Date: 20120326
  Receipt Date: 20120320
  Transmission Date: 20120608
  Serious: Yes (Hospitalization)
  Sender: FDA-Public Use
  Company Number: US-PFIZER INC-2012072967

PATIENT
  Age: 22 Year
  Sex: Female

DRUGS (3)
  1. ZYVOX [Suspect]
     Indication: SOFT TISSUE INFECTION
  2. ZYVOX [Suspect]
     Indication: SKIN INFECTION
     Dosage: 600 MG, 2X/DAY
     Dates: start: 20120318
  3. CYMBALTA [Concomitant]
     Dosage: UNK

REACTIONS (1)
  - CONVULSION [None]
